FAERS Safety Report 8328321-0 (Version None)
Quarter: 2012Q2

REPORT INFORMATION
  Report Type: 
  Country: None (occurrence: None)
  Receive Date: 20120502
  Receipt Date: 20120427
  Transmission Date: 20120825
  Serious: Yes (Death)
  Sender: FDA-Public Use
  Company Number: US-PFIZER INC-2012105758

PATIENT

DRUGS (3)
  1. PROCARDIA [Suspect]
  2. ZOLOFT [Suspect]
  3. ACCUPRIL [Suspect]
     Dosage: UNK

REACTIONS (1)
  - DEATH [None]
